FAERS Safety Report 7226050-8 (Version None)
Quarter: 2011Q1

REPORT INFORMATION
  Report Type: 
  Country: None (occurrence: None)
  Receive Date: 20110113
  Receipt Date: 20110107
  Transmission Date: 20110831
  Serious: Yes (Other)
  Sender: FDA-Public Use
  Company Number: US-RB-014889-10

PATIENT
  Age: 49 Year
  Sex: Male

DRUGS (1)
  1. SUBOXONE [Suspect]
     Indication: PRODUCT USED FOR UNKNOWN INDICATION
     Dosage: DOSING INFORMATION UNKNOWN
     Route: 065

REACTIONS (10)
  - GASTROINTESTINAL DISORDER [None]
  - CONVULSION [None]
  - PAIN [None]
  - ARTHROPATHY [None]
  - CONSTIPATION [None]
  - INTENTIONAL DRUG MISUSE [None]
  - FLAT AFFECT [None]
  - SLEEP DISORDER [None]
  - BACK PAIN [None]
  - BLADDER DISORDER [None]
